FAERS Safety Report 20752644 (Version 1)
Quarter: 2022Q2

REPORT INFORMATION
  Report Type: Spontaneous
  Country: US (occurrence: None)
  Receive Date: 20220426
  Receipt Date: 20220426
  Transmission Date: 20220721
  Serious: No
  Sender: FDA-Public Use
  Company Number: US-ROCHE-2816643

PATIENT
  Sex: Male

DRUGS (10)
  1. ESBRIET [Suspect]
     Active Substance: PIRFENIDONE
     Indication: Obesity
     Dosage: TAKE THREE TABLETS BY MOUTH THREE TIMES A DAY
     Route: 048
  2. ELIQUIS [Concomitant]
     Active Substance: APIXABAN
  3. FERROUS SULFATE [Concomitant]
     Active Substance: FERROUS SULFATE
  4. METOPROLOL SUCCINATE [Concomitant]
     Active Substance: METOPROLOL SUCCINATE
  5. PANTOPRAZOLE SODIUM [Concomitant]
     Active Substance: PANTOPRAZOLE SODIUM
  6. PREGABALIN [Concomitant]
     Active Substance: PREGABALIN
  7. ACYCLOVIR [Concomitant]
     Active Substance: ACYCLOVIR
  8. SIMVASTATIN [Concomitant]
     Active Substance: SIMVASTATIN
  9. SYMBICORT [Concomitant]
     Active Substance: BUDESONIDE\FORMOTEROL FUMARATE DIHYDRATE
  10. VENTOLIN HFA [Concomitant]
     Active Substance: ALBUTEROL SULFATE

REACTIONS (2)
  - Spider vein [Unknown]
  - Off label use [Unknown]
